FAERS Safety Report 5816440-X (Version None)
Quarter: 2008Q3

REPORT INFORMATION
  Report Type: 
  Country: None (occurrence: None)
  Receive Date: 20080721
  Receipt Date: 20080505
  Transmission Date: 20090109
  Serious: No
  Sender: FDA-Public Use
  Company Number: US-BAUSCH-2008BL002005

PATIENT
  Sex: Female

DRUGS (1)
  1. OPCON-A [Suspect]
     Route: 065

REACTIONS (1)
  - BLOOD PRESSURE INCREASED [None]
